FAERS Safety Report 6399266-0 (Version None)
Quarter: 2009Q4

REPORT INFORMATION
  Report Type: 
  Country: None (occurrence: None)
  Receive Date: 20091014
  Receipt Date: 20091005
  Transmission Date: 20100525
  Serious: Yes (Other)
  Sender: FDA-Public Use
  Company Number: ES-RANBAXY-2009RR-26952

PATIENT
  Age: 51 Year
  Sex: Male

DRUGS (2)
  1. IBUPROFEN [Suspect]
     Indication: INFLUENZA
     Dosage: UNK
     Route: 048
  2. IBUPROFEN [Suspect]
     Indication: ALLERGY TEST POSITIVE
     Dosage: 600 MG, UNK

REACTIONS (1)
  - DRUG ERUPTION [None]
